FAERS Safety Report 12961390 (Version 1)
Quarter: 2016Q4

REPORT INFORMATION
  Report Type: Spontaneous
  Country: US (occurrence: US)
  Receive Date: 20161121
  Receipt Date: 20161121
  Transmission Date: 20170207
  Serious: No
  Sender: FDA-Public Use
  Company Number: US-ASTRAZENECA-2016SF19914

PATIENT
  Sex: Female

DRUGS (1)
  1. MOVANTIK [Suspect]
     Active Substance: NALOXEGOL OXALATE
     Dosage: 25.0MG UNKNOWN
     Route: 048

REACTIONS (5)
  - Abdominal distension [Unknown]
  - Functional gastrointestinal disorder [Unknown]
  - Nervousness [Unknown]
  - Nausea [Unknown]
  - Hypoacusis [Unknown]
